FAERS Safety Report 5159917-5 (Version None)
Quarter: 2006Q4

REPORT INFORMATION
  Report Type: 
  Country: None (occurrence: None)
  Receive Date: 20061129
  Receipt Date: 20061104
  Transmission Date: 20070319
  Serious: Yes (Hospitalization, Other)
  Sender: FDA-Public Use
  Company Number: 2006AP05303

PATIENT
  Age: 22 Year
  Sex: Male

DRUGS (3)
  1. SEROQUEL [Suspect]
     Indication: DEPRESSION
     Route: 048
     Dates: start: 20040101, end: 20040101
  2. SEROQUEL [Suspect]
     Route: 048
     Dates: start: 20061101
  3. MARIJUANA [Concomitant]

REACTIONS (8)
  - AMNESIA [None]
  - DIZZINESS [None]
  - GASTRITIS [None]
  - INFECTION [None]
  - LOSS OF CONSCIOUSNESS [None]
  - MALAISE [None]
  - MIGRAINE [None]
  - PHARYNGOLARYNGEAL PAIN [None]
